FAERS Safety Report 4785444-0 (Version None)
Quarter: 2005Q4

REPORT INFORMATION
  Report Type: 
  Country: None (occurrence: None)
  Receive Date: 20051003
  Receipt Date: 20050921
  Transmission Date: 20060501
  Serious: Yes (Hospitalization)
  Sender: FDA-Public Use
  Company Number: FR-BRISTOL-MYERS SQUIBB COMPANY-13120308

PATIENT
  Age: 65 Year
  Sex: Male

DRUGS (11)
  1. AMIKLIN INJ 1 G [Suspect]
     Route: 042
     Dates: start: 20050717, end: 20050724
  2. FORTUM [Suspect]
     Dates: start: 20050717, end: 20050730
  3. NEXIUM [Suspect]
     Dates: start: 20050701, end: 20050801
  4. VFEND [Suspect]
     Dates: start: 20050718, end: 20050801
  5. VANCOMYCIN [Suspect]
     Dates: start: 20050702, end: 20050726
  6. ZELITREX [Concomitant]
  7. ARANESP [Concomitant]
  8. GRANOCYTE [Concomitant]
  9. VITAMIN B-12 [Concomitant]
  10. VITAMIN K [Concomitant]
  11. MELPHALAN [Concomitant]

REACTIONS (1)
  - TOXIC SKIN ERUPTION [None]
